FAERS Safety Report 8988811 (Version 1)
Quarter: 2012Q4

REPORT INFORMATION
  Report Type: 
  Country: US (occurrence: None)
  Receive Date: 20121220
  Receipt Date: 20121220
  Transmission Date: 20130627
  Serious: Yes (Other)
  Sender: FDA-Public Use
  Company Number: 2012MA014054

PATIENT
  Age: 67 Year
  Sex: Female

DRUGS (5)
  1. LOSARTAN POTASSIUM TABLETS [Suspect]
     Indication: HYPERTENSION
     Route: 048
  2. TOPROL [Suspect]
     Route: 048
  3. ADALAT [Suspect]
     Route: 048
  4. LIVALO [Suspect]
     Route: 048
  5. LIPITOR [Concomitant]

REACTIONS (7)
  - Palpitations [None]
  - Dizziness [None]
  - Gait disturbance [None]
  - Balance disorder [None]
  - Overdose [None]
  - Alopecia [None]
  - Fatigue [None]
